FAERS Safety Report 8162328-1 (Version None)
Quarter: 2012Q1

REPORT INFORMATION
  Report Type: 
  Country: None (occurrence: None)
  Receive Date: 20120224
  Receipt Date: 20120217
  Transmission Date: 20120608
  Serious: Yes (Hospitalization)
  Sender: FDA-Public Use
  Company Number: AU-CELGENEUS-008-AB007-11111578

PATIENT
  Sex: Female
  Weight: 72.3 kg

DRUGS (18)
  1. ABRAXANE [Suspect]
     Dosage: 125 MILLIGRAM/SQ. METER
     Route: 041
     Dates: start: 20110211
  2. ACETAMINOPHEN [Concomitant]
     Indication: PAIN
     Dosage: 1 GRAM
     Route: 048
     Dates: start: 20110402
  3. FAMVIR [Concomitant]
     Indication: ANTIVIRAL PROPHYLAXIS
     Dosage: 250 MILLIGRAM
     Route: 048
     Dates: start: 20110211, end: 20111110
  4. ESOMEPRAZOLE SODIUM [Concomitant]
     Dosage: 40 MILLIGRAM
     Route: 048
     Dates: start: 20110318
  5. METOCLOPRAMIDE [Concomitant]
     Indication: NAUSEA
     Dosage: 30 MILLIGRAM
     Route: 048
     Dates: start: 20111111
  6. GEMCITABINE [Suspect]
     Dosage: 800 MILLIGRAM/SQ. METER
     Route: 041
     Dates: start: 20111104, end: 20111111
  7. OXYCODONE HCL [Concomitant]
     Indication: PAIN
     Dosage: 10 MILLIGRAM
     Route: 048
     Dates: start: 20110213
  8. ABRAXANE [Suspect]
     Dosage: 75 MILLIGRAM/SQ. METER
     Route: 041
     Dates: start: 20111104, end: 20111111
  9. GEMCITABINE [Suspect]
     Dosage: 1000 MILLIGRAM/SQ. METER
     Route: 041
     Dates: start: 20110211
  10. CLINDAMYCIN [Suspect]
     Route: 065
  11. LORAZEPAM [Concomitant]
     Indication: NAUSEA
     Dosage: 1 MILLIGRAM
     Route: 048
     Dates: start: 20110415
  12. DEXAMETHASONE [Concomitant]
     Dosage: 1 MILLIGRAM
     Route: 048
     Dates: start: 20110128
  13. ENOXAPARIN [Concomitant]
     Indication: THROMBOSIS
     Dosage: 60 MILLIGRAM
     Route: 058
     Dates: start: 20110211
  14. ONDANSETRON [Concomitant]
     Indication: NAUSEA
     Dosage: 4-8 MG
     Route: 048
     Dates: start: 20111110
  15. ACETAMINOPHEN [Concomitant]
  16. COLOXYL [Concomitant]
     Indication: CONSTIPATION
     Route: 048
     Dates: start: 20110213
  17. PREGABALIN [Concomitant]
     Dosage: 50 MILLIGRAM
     Route: 048
     Dates: start: 20110728
  18. MOVIPREP [Concomitant]
     Indication: CONSTIPATION
     Dosage: 2 TABLET
     Route: 048
     Dates: start: 20111110

REACTIONS (1)
  - HEPATOTOXICITY [None]
